FAERS Safety Report 8231952-X (Version None)
Quarter: 2012Q1

REPORT INFORMATION
  Report Type: 
  Country: None (occurrence: None)
  Receive Date: 20120320
  Receipt Date: 20120309
  Transmission Date: 20120608
  Serious: Yes (Other)
  Sender: FDA-Public Use
  Company Number: PD 158

PATIENT
  Sex: Female

DRUGS (2)
  1. LEVETIRACETAM [Suspect]
     Indication: MYOCLONIC EPILEPSY
     Dosage: 3000 MG/DAY
  2. PRIMIDONE/PHENOBARBITAL [Concomitant]

REACTIONS (4)
  - MATERNAL DRUGS AFFECTING FOETUS [None]
  - EXPOSURE DURING BREAST FEEDING [None]
  - CONVULSION [None]
  - DRUG WITHDRAWAL SYNDROME NEONATAL [None]
